FAERS Safety Report 11625615 (Version 2)
Quarter: 2015Q4

REPORT INFORMATION
  Report Type: Spontaneous
  Country: GB (occurrence: GB)
  Receive Date: 20151013
  Receipt Date: 20151105
  Transmission Date: 20160304
  Serious: Yes (Death, Hospitalization)
  Sender: FDA-Public Use
  Company Number: GB-TEVA-600672ISR

PATIENT
  Age: 19 Month
  Sex: Male

DRUGS (2)
  1. METRONIDAZOLE. [Suspect]
     Active Substance: METRONIDAZOLE
     Indication: DIARRHOEA
     Dosage: 10 MG/KG  EVERY 6 HOURS FOR 2.5 DAYS
     Route: 042
  2. METRONIDAZOLE. [Suspect]
     Active Substance: METRONIDAZOLE
     Indication: DIARRHOEA
     Dosage: 7.5 MG/KG EVERY 6 HOURS FOR 3.5 DAYS
     Route: 042

REACTIONS (1)
  - Acute hepatic failure [Fatal]
